FAERS Safety Report 6430447-3 (Version None)
Quarter: 2009Q4

REPORT INFORMATION
  Report Type: 
  Country: None (occurrence: None)
  Receive Date: 20091106
  Receipt Date: 20091016
  Transmission Date: 20100525
  Serious: Yes (Other)
  Sender: FDA-Public Use
  Company Number: PHHY2009KR44681

PATIENT
  Age: 84 Year
  Sex: Male

DRUGS (3)
  1. DIOVAN [Suspect]
     Indication: PROTEINURIA
     Dosage: 80 MG, UNK
     Route: 048
  2. DIOVAN [Suspect]
     Dosage: 160 MG, UNK
     Route: 048
  3. DIOVAN [Suspect]
     Dosage: 80 MG, UNK
     Route: 048

REACTIONS (2)
  - HEART RATE DECREASED [None]
  - PROTEINURIA [None]
